FAERS Safety Report 9607406 (Version 1)
Quarter: 2013Q4

REPORT INFORMATION
  Report Type: Spontaneous
  Country: US (occurrence: None)
  Receive Date: 20131007
  Receipt Date: 20131007
  Transmission Date: 20140711
  Serious: Yes (Hospitalization, Other)
  Sender: FDA-Public Use
  Company Number: 2012-001683

PATIENT
  Age: 62 Year
  Sex: Female
  Weight: 70 kg

DRUGS (12)
  1. ACTONEL (RISEDRONATE SODIUM) TABLET, 35MG [Suspect]
     Indication: OSTEOPOROSIS
     Dosage: 35 MG ONCE WEEKLY, ORAL
     Route: 048
     Dates: start: 20050527, end: 200605
  2. BONIVA (IBANDRONATE SODIUM) [Suspect]
     Indication: OSTEOPOROSIS
     Dosage: 150 MG ONCE MONTHLY, ORAL
     Route: 048
     Dates: start: 200605, end: 200912
  3. TYLENOL (PARACETAMOL) [Concomitant]
  4. PROPOXYPHENE HYDROCHLORIDE W/PARACETAMOL (DEXTROPROPOXYPHENE HYDROCHLORIDE, PARACETAMOL) [Concomitant]
  5. TIZANIDINE (TIZANIDINE) [Concomitant]
  6. ALLEGRA [Suspect]
  7. BUSPIRONE (BUSPIRONE) [Concomitant]
  8. AMBIEN (ZOLPIDEM TARTRATE) [Concomitant]
  9. CHLORHEXIDINE GLUCONATE (CHLORHEXIDINE GLUCONATE) [Concomitant]
  10. OMEGA-3 FATTY ACIDS (OMEGA-3 FATTY ACIDS) [Concomitant]
  11. VITAMINS B-12 (CYANOCOBALAMIN) [Concomitant]
  12. VITAMIN E (TOCOPHEROL) [Concomitant]

REACTIONS (7)
  - Femur fracture [None]
  - Fall [None]
  - Pain in extremity [None]
  - Osteopenia [None]
  - Deep vein thrombosis [None]
  - Post procedural complication [None]
  - Liver function test abnormal [None]
